FAERS Safety Report 24981965 (Version 1)
Quarter: 2025Q1

REPORT INFORMATION
  Report Type: Spontaneous
  Country: BE (occurrence: BE)
  Receive Date: 20250218
  Receipt Date: 20250218
  Transmission Date: 20250409
  Serious: Yes (Death, Hospitalization, Other)
  Sender: ASTELLAS
  Company Number: BE-GILEAD-2025-0703543

PATIENT
  Age: 61 Year
  Sex: Female

DRUGS (2)
  1. AMBISOME [Suspect]
     Active Substance: AMPHOTERICIN B
     Indication: Antifungal prophylaxis
     Dosage: 3 MG/KG, QD
     Route: 065
  2. AMBISOME [Suspect]
     Active Substance: AMPHOTERICIN B
     Dosage: 5 MG/KG, QD
     Route: 065

REACTIONS (11)
  - Death [Fatal]
  - Respiratory failure [Unknown]
  - Renal failure [Unknown]
  - Pancytopenia [Unknown]
  - Neutropenia [Unknown]
  - Haematological malignancy [Unknown]
  - Multiple organ dysfunction syndrome [Unknown]
  - Pneumatosis intestinalis [Unknown]
  - Lactic acidosis [Unknown]
  - Hyperventilation [Unknown]
  - Critical illness [Unknown]
